FAERS Safety Report 21931821 (Version 1)
Quarter: 2023Q1

REPORT INFORMATION
  Report Type: Spontaneous
  Country: US (occurrence: None)
  Receive Date: 20230130
  Receipt Date: 20230130
  Transmission Date: 20230418
  Serious: Yes (Other)
  Sender: FDA-Public Use
  Company Number: None

PATIENT
  Sex: Male

DRUGS (3)
  1. ZARXIO [Suspect]
     Active Substance: FILGRASTIM-SNDZ
     Indication: Plasma cell myeloma
     Dosage: OTHER STRENGTH : 300MCG/0.5ML;?OTHER QUANTITY : 300MCG/0.5ML;?
     Dates: start: 20220708
  2. ACYCLOVIR [Concomitant]
     Active Substance: ACYCLOVIR
  3. PANTOPRAZOLE [Concomitant]

REACTIONS (1)
  - Bone marrow transplant [None]
